FAERS Safety Report 4522331-7 (Version None)
Quarter: 2004Q4

REPORT INFORMATION
  Report Type: 
  Country: None (occurrence: None)
  Receive Date: 20041116
  Receipt Date: 20040809
  Transmission Date: 20050328
  Serious: No
  Sender: FDA-Public Use
  Company Number: S04-USA-05605-01

PATIENT
  Age: 91 Year
  Sex: Male

DRUGS (10)
  1. NAMENDA [Suspect]
     Indication: VASCULAR DEMENTIA
     Dosage: 5 MG QD PO
     Route: 048
     Dates: start: 20040714, end: 20040720
  2. NAMENDA [Suspect]
     Indication: VASCULAR DEMENTIA
     Dosage: 10 MG QD PO
     Route: 048
     Dates: start: 20040721, end: 20040727
  3. NAMENDA [Suspect]
     Indication: VASCULAR DEMENTIA
     Dosage: 15 MG QD PO
     Route: 048
     Dates: start: 20040728, end: 20040803
  4. NAMENDA [Suspect]
     Indication: VASCULAR DEMENTIA
     Dosage: 20 MG QD PO
     Route: 048
     Dates: start: 20040804
  5. FLOMAX [Concomitant]
  6. FUROSEMIDE [Concomitant]
  7. REMINYL [Concomitant]
  8. SEROQUEL [Concomitant]
  9. NADOLOL [Concomitant]
  10. COUMADIN [Concomitant]

REACTIONS (3)
  - ANGER [None]
  - DEPRESSION [None]
  - SOMNOLENCE [None]
